FAERS Safety Report 8394773-3 (Version None)
Quarter: 2012Q2

REPORT INFORMATION
  Report Type: 
  Country: None (occurrence: None)
  Receive Date: 20120524
  Receipt Date: 20120516
  Transmission Date: 20120825
  Serious: Yes (Death, Hospitalization)
  Sender: FDA-Public Use
  Company Number: UTC-018561

PATIENT
  Age: 29 Year
  Sex: Female
  Weight: 82.3 kg

DRUGS (4)
  1. DIGOXIN [Concomitant]
  2. COUMADIN [Concomitant]
  3. DIURETICS (DIURETICS) [Concomitant]
  4. REMODULIN [Suspect]
     Indication: PULMONARY ARTERIAL HYPERTENSION
     Dosage: 2.88 UG/KG (0.002 UG/KG, 1 IN 1 MIN),SUBCUTANEOUS
     Route: 058
     Dates: start: 20120502

REACTIONS (6)
  - HYPOTENSION [None]
  - VENTRICULAR TACHYCARDIA [None]
  - BACK PAIN [None]
  - ABDOMINAL PAIN [None]
  - DIARRHOEA [None]
  - CARDIAC ARREST [None]
